FAERS Safety Report 7303910-0 (Version None)
Quarter: 2011Q1

REPORT INFORMATION
  Report Type: 
  Country: None (occurrence: None)
  Receive Date: 20110221
  Receipt Date: 20110211
  Transmission Date: 20110831
  Serious: Yes (Hospitalization)
  Sender: FDA-Public Use
  Company Number: B0700840A

PATIENT
  Sex: Male
  Weight: 73 kg

DRUGS (1)
  1. OFATUMUMAB [Suspect]
     Indication: MANTLE CELL LYMPHOMA
     Dosage: 300MG PER DAY
     Route: 042
     Dates: start: 20110209

REACTIONS (1)
  - DISSEMINATED INTRAVASCULAR COAGULATION [None]
